FAERS Safety Report 15559930 (Version 1)
Quarter: 2018Q4

REPORT INFORMATION
  Report Type: Report from Study
  Country: GB (occurrence: GB)
  Receive Date: 20181029
  Receipt Date: 20181029
  Transmission Date: 20190205
  Serious: Yes (Other)
  Sender: FDA-Public Use
  Company Number: GB-TEVA-2018-GB-968806

PATIENT
  Sex: Male

DRUGS (3)
  1. VINCRISTINE [Suspect]
     Active Substance: VINCRISTINE
     Indication: RETINOBLASTOMA
     Dosage: ADMINISTERED AT INTERVALS OF THREE WEEKS
     Route: 042
  2. CARBOPLATIN. [Suspect]
     Active Substance: CARBOPLATIN
     Indication: RETINOBLASTOMA
     Dosage: ADMINISTERED AT INTERVALS OF THREE WEEKS
     Route: 042
  3. ETOPOSIDE. [Suspect]
     Active Substance: ETOPOSIDE
     Indication: RETINOBLASTOMA
     Dosage: ADMINISTERED AT INTERVALS OF THREE WEEKS
     Route: 042

REACTIONS (2)
  - Retinoblastoma [Recovered/Resolved]
  - Unmasking of previously unidentified disease [Recovered/Resolved]
